FAERS Safety Report 7302209-6 (Version None)
Quarter: 2011Q1

REPORT INFORMATION
  Report Type: 
  Country: None (occurrence: None)
  Receive Date: 20110218
  Receipt Date: 20110214
  Transmission Date: 20110831
  Serious: Yes (Death, Other)
  Sender: FDA-Public Use
  Company Number: PHHY2011US12371

PATIENT
  Age: 47 Year
  Sex: Female

DRUGS (3)
  1. BEVACIZUMAB [Suspect]
     Dosage: 10 MG/KG, QW2
  2. DEXAMETHASONE [Suspect]
     Dosage: 1 MG, QD
  3. TEMOZOLOMIDE [Concomitant]
     Dosage: 200 MG/M2, FOR 5 DAYS OF A 28 -DAY CYCLE
     Route: 048

REACTIONS (5)
  - SKIN ULCER [None]
  - MYOPATHY [None]
  - CUSHINGOID [None]
  - SKIN STRIAE [None]
  - DEATH [None]
